FAERS Safety Report 21593614 (Version 1)
Quarter: 2022Q4

REPORT INFORMATION
  Report Type: Report from Study
  Country: US (occurrence: US)
  Receive Date: 20221115
  Receipt Date: 20221115
  Transmission Date: 20230113
  Serious: No
  Sender: FDA-Public Use
  Company Number: US-ABBVIE-22K-163-4521604-00

PATIENT
  Sex: Male

DRUGS (3)
  1. RINVOQ [Suspect]
     Active Substance: UPADACITINIB
     Indication: Rheumatoid arthritis
     Dosage: THERAPY START DATE WAS 01 JUL 2022?THERAPY END DATE WAS 2022
     Route: 048
  2. RINVOQ [Suspect]
     Active Substance: UPADACITINIB
     Indication: Rheumatoid arthritis
     Dosage: FORM STRENGTH: 15 MILLIGRAM,?THERAPY START DATE WAS 2022
     Route: 048
     Dates: end: 202209
  3. RINVOQ [Suspect]
     Active Substance: UPADACITINIB
     Indication: Rheumatoid arthritis
     Route: 048

REACTIONS (9)
  - Peripheral swelling [Recovered/Resolved]
  - Contusion [Recovering/Resolving]
  - Acne [Recovered/Resolved]
  - Nasal oedema [Recovered/Resolved]
  - Arthralgia [Unknown]
  - Fatigue [Unknown]
  - Weight increased [Recovering/Resolving]
  - Erythema [Unknown]
  - Headache [Unknown]

NARRATIVE: CASE EVENT DATE: 20220101
